FAERS Safety Report 22100169 (Version 1)
Quarter: 2023Q1

REPORT INFORMATION
  Report Type: Spontaneous
  Country: None (occurrence: US)
  Receive Date: 20230315
  Receipt Date: 20230315
  Transmission Date: 20230418
  Serious: Yes (Other)
  Sender: FDA-Public Use
  Company Number: US-The Proactiv LLC-2139132

PATIENT
  Age: 14 Year
  Sex: Male

DRUGS (5)
  1. PROACTIV SOLUTION BLACKHEAD DISSOLVING [Suspect]
     Active Substance: SALICYLIC ACID
     Indication: Acne
     Route: 061
     Dates: start: 2023, end: 2023
  2. PROACTIV MD ADAPALENE ACNE TREATMENT [Concomitant]
     Active Substance: ADAPALENE
     Route: 061
     Dates: start: 2023, end: 2023
  3. Proactiv MD Ultra Gentle Cleanser (cosmetic) [Concomitant]
     Route: 061
     Dates: start: 2023, end: 2023
  4. Proactiv MD Ultra Hydrating Moisturizer (cosmetic) [Concomitant]
     Route: 061
     Dates: start: 2023, end: 2023
  5. Proactiv Pore Cleansing Brush [Concomitant]
     Route: 061
     Dates: start: 2023, end: 2023

REACTIONS (4)
  - Hypersensitivity [Recovered/Resolved]
  - Urticaria [Recovered/Resolved]
  - Erythema [Recovered/Resolved]
  - Rash maculo-papular [Recovered/Resolved]

NARRATIVE: CASE EVENT DATE: 20230101
